FAERS Safety Report 15723845 (Version 3)
Quarter: 2020Q3

REPORT INFORMATION
  Report Type: Spontaneous
  Country: US (occurrence: US)
  Receive Date: 20181214
  Receipt Date: 20200713
  Transmission Date: 20201102
  Serious: Yes (Other)
  Sender: FDA-Public Use
  Company Number: US-ASTRAZENECA-2018SF61882

PATIENT
  Age: 23454 Day
  Sex: Male
  Weight: 102.1 kg

DRUGS (92)
  1. CITALOPRAM [Concomitant]
     Active Substance: CITALOPRAM HYDROBROMIDE
     Indication: AFFECTIVE DISORDER
     Route: 065
     Dates: start: 201002, end: 201112
  2. ANDROGEL [Concomitant]
     Active Substance: TESTOSTERONE
     Indication: HORMONE THERAPY
     Route: 065
     Dates: start: 201207, end: 201405
  3. ROLAIDS [Concomitant]
     Active Substance: CALCIUM CARBONATE\MAGNESIUM HYDROXIDE
     Route: 065
  4. MELOXICAM. [Concomitant]
     Active Substance: MELOXICAM
     Route: 065
  5. SIMETHICONE (DIMETHICONE) [Concomitant]
     Active Substance: DIMETHICONE
  6. FERROUS SULFATE. [Concomitant]
     Active Substance: FERROUS SULFATE
  7. CEPACOL [Concomitant]
     Active Substance: BENZOCAINE
  8. ACETAMINOPHEN. [Concomitant]
     Active Substance: ACETAMINOPHEN
     Indication: PAIN
     Route: 065
  9. ATORVASTATIN [Concomitant]
     Active Substance: ATORVASTATIN
     Route: 065
  10. DOXYCYCLINE HYCLATE. [Concomitant]
     Active Substance: DOXYCYCLINE HYCLATE
     Route: 065
     Dates: start: 20150222
  11. CHLORHEXIDINE [Concomitant]
     Active Substance: CHLORHEXIDINE
     Route: 065
     Dates: start: 20160830
  12. VITAMIN C [Concomitant]
     Active Substance: ASCORBIC ACID
     Route: 065
     Dates: start: 20190306
  13. PERCOCET [Concomitant]
     Active Substance: ACETAMINOPHEN\OXYCODONE HYDROCHLORIDE
  14. GLYCOPYRROLATE. [Concomitant]
     Active Substance: GLYCOPYRROLATE
  15. NEOSTIGMINE. [Concomitant]
     Active Substance: NEOSTIGMINE METHYLSULFATE
  16. PHENYLEPHRINE [Concomitant]
     Active Substance: PHENYLEPHRINE HYDROCHLORIDE
  17. VANCOMYCIN [Concomitant]
     Active Substance: VANCOMYCIN
  18. BUPIVACAINE. [Concomitant]
     Active Substance: BUPIVACAINE
  19. CORTICOSTEROID [Concomitant]
     Active Substance: CORTICOSTEROID NOS
  20. MENTHOL. [Concomitant]
     Active Substance: MENTHOL
  21. NEXIUM [Suspect]
     Active Substance: ESOMEPRAZOLE MAGNESIUM
     Indication: GASTROOESOPHAGEAL REFLUX DISEASE
     Route: 048
     Dates: start: 2007, end: 2015
  22. ZOLPIDEM [Concomitant]
     Active Substance: ZOLPIDEM TARTRATE
     Indication: SLEEP DISORDER
     Route: 065
     Dates: start: 201403
  23. NAPROXEN. [Concomitant]
     Active Substance: NAPROXEN
     Route: 065
  24. LISINOPRIL. [Concomitant]
     Active Substance: LISINOPRIL
     Route: 065
     Dates: start: 20181004
  25. DOLASETRON [Concomitant]
     Active Substance: DOLASETRON
  26. FUROSEMIDE. [Concomitant]
     Active Substance: FUROSEMIDE
  27. BENADRYL [Concomitant]
     Active Substance: DIPHENHYDRAMINE HYDROCHLORIDE
  28. FISH OIL [Concomitant]
     Active Substance: FISH OIL
  29. MOMETASONE [Concomitant]
     Active Substance: MOMETASONE
  30. PANTOPRAZOLE [Concomitant]
     Active Substance: PANTOPRAZOLE
  31. OMEPRAZOLE. [Suspect]
     Active Substance: OMEPRAZOLE
     Indication: GASTROOESOPHAGEAL REFLUX DISEASE
     Dosage: GENERIC40.0MG UNKNOWN
     Route: 065
     Dates: start: 20181004
  32. BUDEPRION [Concomitant]
     Active Substance: BUPROPION HYDROCHLORIDE
     Indication: AFFECTIVE DISORDER
     Route: 065
     Dates: start: 201109, end: 201203
  33. VITAMIN D2 [Concomitant]
     Active Substance: ERGOCALCIFEROL
     Indication: SUPPLEMENTATION THERAPY
     Route: 065
     Dates: start: 201110, end: 201202
  34. MULTIVITAMINS [Concomitant]
     Active Substance: VITAMINS
     Indication: SUPPLEMENTATION THERAPY
     Route: 065
  35. AMOXICILLIN. [Concomitant]
     Active Substance: AMOXICILLIN
     Route: 065
     Dates: start: 20160830
  36. ROCURONIUM [Concomitant]
     Active Substance: ROCURONIUM BROMIDE
  37. MORPHINE [Concomitant]
     Active Substance: MORPHINE
  38. MAGNESIUM HYDROXIDE. [Concomitant]
     Active Substance: MAGNESIUM HYDROXIDE
  39. LACTATED RINGERS SOLUTION [Concomitant]
     Active Substance: CALCIUM CHLORIDE\POTASSIUM CHLORIDE\SODIUM CHLORIDE\SODIUM LACTATE
  40. NEXIUM [Suspect]
     Active Substance: ESOMEPRAZOLE MAGNESIUM
     Indication: GASTROOESOPHAGEAL REFLUX DISEASE
     Dosage: GENERIC40.0MG UNKNOWN
     Route: 065
     Dates: start: 2015
  41. AMLODIPINE [Concomitant]
     Active Substance: AMLODIPINE BESYLATE
     Indication: BLOOD PRESSURE ABNORMAL
     Route: 065
     Dates: start: 201309, end: 201511
  42. METOPROLOL SUCCINATE. [Concomitant]
     Active Substance: METOPROLOL SUCCINATE
     Route: 065
  43. CABERGOLINE. [Concomitant]
     Active Substance: CABERGOLINE
     Route: 065
     Dates: start: 20180129
  44. ASPIRIN. [Concomitant]
     Active Substance: ASPIRIN
     Route: 065
     Dates: start: 20190306
  45. FINASTERIDE. [Concomitant]
     Active Substance: FINASTERIDE
     Route: 065
     Dates: start: 20190710
  46. FENTANYL. [Concomitant]
     Active Substance: FENTANYL
  47. DOXYCYCLINE. [Concomitant]
     Active Substance: DOXYCYCLINE
  48. KENALOG [Concomitant]
     Active Substance: TRIAMCINOLONE ACETONIDE
  49. MYLANTA [Concomitant]
     Active Substance: ALUMINUM HYDROXIDE\DIMETHICONE\MAGNESIUM HYDROXIDE
  50. NEXIUM [Suspect]
     Active Substance: ESOMEPRAZOLE MAGNESIUM
     Indication: GASTROOESOPHAGEAL REFLUX DISEASE
     Route: 048
     Dates: start: 2001, end: 2015
  51. CYCLOBENZAPRINE. [Concomitant]
     Active Substance: CYCLOBENZAPRINE
     Indication: MUSCLE RELAXANT THERAPY
     Route: 065
     Dates: start: 201201
  52. SIMVASTATIN. [Concomitant]
     Active Substance: SIMVASTATIN
     Indication: BLOOD CHOLESTEROL INCREASED
     Route: 065
     Dates: start: 201308, end: 201408
  53. TAMSULOSIN [Concomitant]
     Active Substance: TAMSULOSIN
     Indication: URINARY RETENTION
     Route: 065
     Dates: start: 201305, end: 201311
  54. IBUPROFEN. [Concomitant]
     Active Substance: IBUPROFEN
     Route: 065
     Dates: start: 20160830
  55. BUPROPION. [Concomitant]
     Active Substance: BUPROPION
     Route: 065
     Dates: start: 20181004
  56. OXYCODONE [Concomitant]
     Active Substance: OXYCODONE
     Route: 065
     Dates: start: 20190307
  57. ARTHROTEC [Concomitant]
     Active Substance: DICLOFENAC SODIUM\MISOPROSTOL
  58. LAMICTAL [Concomitant]
     Active Substance: LAMOTRIGINE
  59. ALFENTANIL. [Concomitant]
     Active Substance: ALFENTANIL
  60. MIDAZOLAM. [Concomitant]
     Active Substance: MIDAZOLAM
  61. CIPROFLOXACIN. [Concomitant]
     Active Substance: CIPROFLOXACIN
  62. LIDOCAINE. [Concomitant]
     Active Substance: LIDOCAINE
  63. ALEVE [Concomitant]
     Active Substance: NAPROXEN SODIUM
  64. BENZTROPINE. [Concomitant]
     Active Substance: BENZTROPINE
  65. SODIUM CHLORIDE. [Concomitant]
     Active Substance: SODIUM CHLORIDE
  66. TIOTROPIUM?OLODATEROL [Concomitant]
  67. PROTAMINE [Concomitant]
     Active Substance: PROTAMINE
  68. ATROVENT [Concomitant]
     Active Substance: IPRATROPIUM BROMIDE
  69. HYDROMORPHONE [Concomitant]
     Active Substance: HYDROMORPHONE
  70. OMEPRAZOLE. [Suspect]
     Active Substance: OMEPRAZOLE
     Indication: GASTROOESOPHAGEAL REFLUX DISEASE
     Dosage: GENERIC20.0MG UNKNOWN
     Route: 065
     Dates: start: 2015
  71. DILTIAZEM. [Concomitant]
     Active Substance: DILTIAZEM
     Route: 065
  72. VENTOLIN [Concomitant]
     Active Substance: ALBUTEROL SULFATE
     Route: 065
     Dates: start: 20150222
  73. PROPOFOL. [Concomitant]
     Active Substance: PROPOFOL
  74. EPHEDRINE. [Concomitant]
     Active Substance: EPHEDRINE
  75. VICODIN [Concomitant]
     Active Substance: ACETAMINOPHEN\HYDROCODONE BITARTRATE
  76. AMIODARONE [Concomitant]
     Active Substance: AMIODARONE
  77. KETOROLAC TROMETHAMINE. [Concomitant]
     Active Substance: KETOROLAC TROMETHAMINE
  78. BISACODYL. [Concomitant]
     Active Substance: BISACODYL
  79. SERTRALINE [Concomitant]
     Active Substance: SERTRALINE HYDROCHLORIDE
  80. VIOXX [Concomitant]
     Active Substance: ROFECOXIB
  81. ABILIFY [Concomitant]
     Active Substance: ARIPIPRAZOLE
     Indication: AFFECTIVE DISORDER
     Route: 065
     Dates: start: 201108, end: 201109
  82. METHYLPREDNISOLONE. [Concomitant]
     Active Substance: METHYLPREDNISOLONE
     Route: 065
     Dates: start: 20150222
  83. ELIQUIS [Concomitant]
     Active Substance: APIXABAN
     Route: 065
     Dates: start: 20151024
  84. ZOLOFT [Concomitant]
     Active Substance: SERTRALINE HYDROCHLORIDE
  85. ANCEF [Concomitant]
     Active Substance: CEFAZOLIN SODIUM
  86. ONDANSETRON [Concomitant]
     Active Substance: ONDANSETRON
  87. VALIUM [Concomitant]
     Active Substance: DIAZEPAM
  88. COLACE [Concomitant]
     Active Substance: DOCUSATE SODIUM
  89. CARDIZEM [Concomitant]
     Active Substance: DILTIAZEM HYDROCHLORIDE
  90. TRANSDERMAL GEL [Concomitant]
  91. TETROFOSMIN. [Concomitant]
     Active Substance: TETROFOSMIN
  92. VIOKASE [Concomitant]
     Active Substance: PANCRELIPASE

REACTIONS (3)
  - Acute kidney injury [Unknown]
  - Chronic kidney disease [Not Recovered/Not Resolved]
  - Renal failure [Unknown]

NARRATIVE: CASE EVENT DATE: 20131108
